FAERS Safety Report 12722299 (Version 1)
Quarter: 2016Q3

REPORT INFORMATION
  Report Type: Other
  Country: GB (occurrence: GB)
  Receive Date: 20160907
  Receipt Date: 20160907
  Transmission Date: 20161109
  Serious: Yes (Hospitalization, Other)
  Sender: FDA-Public Use
  Company Number: GB-PERRIGO-16GB019698

PATIENT

DRUGS (1)
  1. IBUPROFEN. [Suspect]
     Active Substance: IBUPROFEN
     Indication: PRODUCT USED FOR UNKNOWN INDICATION
     Dosage: UNKNOWN - PATIENT SELF-MEDICATED
     Route: 048
     Dates: start: 20160805, end: 20160812

REACTIONS (2)
  - Acute kidney injury [Not Recovered/Not Resolved]
  - Anuria [Unknown]

NARRATIVE: CASE EVENT DATE: 20160812
